FAERS Safety Report 13840266 (Version 2)
Quarter: 2018Q3

REPORT INFORMATION
  Report Type: Spontaneous
  Country: US (occurrence: US)
  Receive Date: 20170807
  Receipt Date: 20180802
  Transmission Date: 20181010
  Serious: No
  Sender: FDA-Public Use
  Company Number: US-ALLERGAN-1710180US

PATIENT
  Sex: Male

DRUGS (1)
  1. LEVOBUNOLOL HCL, 0.25% [Suspect]
     Active Substance: LEVOBUNOLOL HYDROCHLORIDE
     Indication: PRODUCT USED FOR UNKNOWN INDICATION
     Dosage: UNK
     Route: 047
     Dates: start: 1997, end: 1997

REACTIONS (1)
  - Hypersensitivity [Unknown]
